FAERS Safety Report 14795244 (Version 3)
Quarter: 2019Q2

REPORT INFORMATION
  Report Type: Spontaneous
  Country: US (occurrence: US)
  Receive Date: 20180423
  Receipt Date: 20190419
  Transmission Date: 20190711
  Serious: Yes (Hospitalization)
  Sender: FDA-Public Use
  Company Number: US-ACTELION-A-US2018-170931

PATIENT
  Sex: Male

DRUGS (1)
  1. TRACLEER [Suspect]
     Active Substance: BOSENTAN
     Indication: PULMONARY ARTERIAL HYPERTENSION
     Dosage: 31.25 MG, BID
     Route: 048
     Dates: start: 20120808

REACTIONS (8)
  - Fatigue [Unknown]
  - Chest pain [Unknown]
  - Dyspnoea exertional [Unknown]
  - Petit mal epilepsy [Unknown]
  - Malaise [Unknown]
  - Muscle rupture [Unknown]
  - Dyspnoea [Unknown]
  - Tachycardia [Unknown]
